FAERS Safety Report 13348245 (Version 1)
Quarter: 2017Q1

REPORT INFORMATION
  Report Type: Spontaneous
  Country: US (occurrence: US)
  Receive Date: 20170319
  Receipt Date: 20170319
  Transmission Date: 20170428
  Serious: No
  Sender: FDA-Public Use
  Company Number: US-ELI_LILLY_AND_COMPANY-US201608004824

PATIENT
  Sex: Female
  Weight: 102.49 kg

DRUGS (4)
  1. CYMBALTA [Suspect]
     Active Substance: DULOXETINE HYDROCHLORIDE
     Dosage: 2 DF, UNKNOWN
     Route: 065
     Dates: start: 20160514, end: 20161115
  2. CYMBALTA [Suspect]
     Active Substance: DULOXETINE HYDROCHLORIDE
     Dosage: 3 DF, UNKNOWN
     Route: 048
     Dates: end: 20161014
  3. CYMBALTA [Suspect]
     Active Substance: DULOXETINE HYDROCHLORIDE
     Dosage: 1 DF, UNKNOWN
     Route: 065
     Dates: start: 20161115, end: 20161207
  4. CYMBALTA [Suspect]
     Active Substance: DULOXETINE HYDROCHLORIDE
     Indication: PRODUCT USED FOR UNKNOWN INDICATION
     Dosage: UNK, UNKNOWN
     Route: 065

REACTIONS (6)
  - Paraesthesia [Unknown]
  - Drug withdrawal syndrome [Unknown]
  - Depression [Unknown]
  - Generalised anxiety disorder [Unknown]
  - Carpal tunnel syndrome [Unknown]
  - Headache [Unknown]
